FAERS Safety Report 5167009-4 (Version None)
Quarter: 2006Q4

REPORT INFORMATION
  Report Type: 
  Country: None (occurrence: None)
  Receive Date: 20061124
  Receipt Date: 20061110
  Transmission Date: 20070319
  Serious: Yes (Other)
  Sender: FDA-Public Use
  Company Number: 2006BH014307

PATIENT
  Age: 10 Year
  Sex: Male
  Weight: 41 kg

DRUGS (1)
  1. IMMUNE GLOBULIN INTRAVENOUS (HUMAN) [Suspect]
     Indication: HYPOGAMMAGLOBULINAEMIA
     Dosage: 5 ML; ONCE; IV
     Route: 042
     Dates: start: 20061023, end: 20061023

REACTIONS (5)
  - ANAPHYLACTIC REACTION [None]
  - FEELING COLD [None]
  - HEADACHE [None]
  - INFECTION [None]
  - INFUSION RELATED REACTION [None]
